FAERS Safety Report 12848085 (Version 1)
Quarter: 2016Q4

REPORT INFORMATION
  Report Type: Spontaneous
  Country: US (occurrence: US)
  Receive Date: 20161014
  Receipt Date: 20161014
  Transmission Date: 20170207
  Serious: No
  Sender: FDA-Public Use
  Company Number: US-JNJFOC-20160817675

PATIENT
  Sex: Female

DRUGS (2)
  1. CHILDRENS MOTRIN [Suspect]
     Active Substance: IBUPROFEN
     Indication: PRODUCT USED FOR UNKNOWN INDICATION
     Route: 048
     Dates: start: 20160819
  2. CHILDRENS MOTRIN [Suspect]
     Active Substance: IBUPROFEN
     Route: 048

REACTIONS (2)
  - Product label issue [Unknown]
  - Expired product administered [Unknown]

NARRATIVE: CASE EVENT DATE: 20160819
